FAERS Safety Report 15318767 (Version 1)
Quarter: 2018Q3

REPORT INFORMATION
  Report Type: Spontaneous
  Country: US (occurrence: US)
  Receive Date: 20180818
  Receipt Date: 20180818
  Transmission Date: 20181010
  Serious: Yes (Other)
  Sender: FDA-Public Use
  Company Number: None

PATIENT
  Age: 64 Year
  Sex: Male

DRUGS (1)
  1. ESBRIET [Suspect]
     Active Substance: PIRFENIDONE
     Indication: IDIOPATHIC PULMONARY FIBROSIS
     Route: 048
     Dates: start: 20180415, end: 20180818

REACTIONS (5)
  - Rash [None]
  - Heavy exposure to ultraviolet light [None]
  - Emotional distress [None]
  - Rash erythematous [None]
  - Intentional product use issue [None]

NARRATIVE: CASE EVENT DATE: 20180630
